FAERS Safety Report 10078960 (Version 1)
Quarter: 2014Q2

REPORT INFORMATION
  Report Type: Spontaneous
  Country: US (occurrence: US)
  Receive Date: 20140415
  Receipt Date: 20140415
  Transmission Date: 20141212
  Serious: Yes (Hospitalization)
  Sender: FDA-Public Use
  Company Number: US-AMGEN-USASP2014025998

PATIENT
  Age: 62 Year
  Sex: Female

DRUGS (3)
  1. ENBREL [Suspect]
     Indication: RHEUMATOID ARTHRITIS
     Dosage: 25 MG, 2 TIMES/WK
     Route: 065
     Dates: start: 1998, end: 201312
  2. METHOTREXATE [Suspect]
     Indication: RHEUMATOID ARTHRITIS
     Dosage: UNK
     Route: 065
  3. LEFLUNOMIDE [Concomitant]
     Dosage: UNK

REACTIONS (13)
  - Hypotension [Recovered/Resolved]
  - White blood cell count decreased [Recovered/Resolved]
  - Renal disorder [Recovered/Resolved]
  - Visual impairment [Recovered/Resolved]
  - Asthenia [Recovered/Resolved]
  - Dizziness [Recovered/Resolved]
  - Loss of consciousness [Recovered/Resolved]
  - Back pain [Not Recovered/Not Resolved]
  - Pain in extremity [Not Recovered/Not Resolved]
  - Joint swelling [Not Recovered/Not Resolved]
  - Arthralgia [Not Recovered/Not Resolved]
  - Pain [Unknown]
  - Condition aggravated [Unknown]
